FAERS Safety Report 8891984 (Version 1)
Quarter: 2012Q4

REPORT INFORMATION
  Report Type: 
  Country: US (occurrence: US)
  Receive Date: 20121107
  Receipt Date: 20121107
  Transmission Date: 20130627
  Serious: No
  Sender: FDA-Public Use
  Company Number: US-AMGEN-USASP2011051542

PATIENT
  Age: 23 Year
  Sex: Female
  Weight: 72.56 kg

DRUGS (11)
  1. ENBREL [Suspect]
     Indication: RHEUMATOID ARTHRITIS
     Dosage: 25 mg, 2 times/wk
  2. SERTRALINE [Concomitant]
     Dosage: 100 mg, UNK
  3. FOLIC ACID [Concomitant]
     Dosage: 1 mg, UNK
  4. VITAMIN B [Concomitant]
  5. FISH OIL [Concomitant]
  6. VITAMIN D [Concomitant]
     Dosage: 1000 IU, UNK
  7. ZINC [Concomitant]
     Dosage: 30 mg, UNK
  8. BIOTIN [Concomitant]
     Dosage: 1000 mug, UNK
  9. CRANBERRY                          /01512301/ [Concomitant]
     Dosage: 1000 mg, UNK
  10. MULTI VITAMIN AND MINERAL + SELENIUM [Concomitant]
  11. ZYRTEC DAIICHI [Concomitant]
     Dosage: 10 mg, UNK

REACTIONS (2)
  - Injection site erythema [Unknown]
  - Injection site pruritus [Unknown]
